FAERS Safety Report 11847991 (Version 2)
Quarter: 2016Q1

REPORT INFORMATION
  Report Type: Spontaneous
  Country: US (occurrence: US)
  Receive Date: 20151217
  Receipt Date: 20160310
  Transmission Date: 20160526
  Serious: Yes (Death, Hospitalization)
  Sender: FDA-Public Use
  Company Number: US-ENDO PHARMACEUTICALS INC.-2015-004970

PATIENT
  Age: 75 Year
  Sex: Male
  Weight: 83.99 kg

DRUGS (2)
  1. STRIANT [Suspect]
     Active Substance: TESTOSTERONE
     Indication: ANDROGEN REPLACEMENT THERAPY
     Route: 002
     Dates: start: 20120628, end: 20130321
  2. ANDROGEL [Suspect]
     Active Substance: TESTOSTERONE
     Indication: ANDROGEN REPLACEMENT THERAPY
     Route: 065
     Dates: start: 20130321, end: 20140919

REACTIONS (10)
  - Upper respiratory tract infection [Recovered/Resolved]
  - Subdural haemorrhage [Recovered/Resolved]
  - Acute myocardial infarction [Recovered/Resolved]
  - Cardiogenic shock [Recovered/Resolved]
  - Cardiac failure congestive [Recovered/Resolved]
  - Acute kidney injury [Recovered/Resolved]
  - Coronary artery disease [Fatal]
  - Acute respiratory failure [Recovered/Resolved]
  - Myocardial infarction [Fatal]
  - Hypernatraemia [Not Recovered/Not Resolved]

NARRATIVE: CASE EVENT DATE: 20131229
